FAERS Safety Report 9611463 (Version 2)
Quarter: 2013Q4

REPORT INFORMATION
  Report Type: Spontaneous
  Country: US (occurrence: US)
  Receive Date: 20131010
  Receipt Date: 20131024
  Transmission Date: 20140711
  Serious: Yes (Death)
  Sender: FDA-Public Use
  Company Number: US-AMGEN-USASP2013069990

PATIENT
  Age: 79 Year
  Sex: Male

DRUGS (2)
  1. PROLIA [Suspect]
     Indication: PRODUCT USED FOR UNKNOWN INDICATION
     Dosage: UNK
     Route: 065
  2. CORTICOSTEROIDS [Concomitant]
     Dosage: UNK

REACTIONS (3)
  - Bronchopulmonary aspergillosis [Fatal]
  - Allergic granulomatous angiitis [Fatal]
  - Respiratory arrest [Fatal]
